FAERS Safety Report 6895371-0 (Version None)
Quarter: 2010Q3

REPORT INFORMATION
  Report Type: 
  Country: None (occurrence: None)
  Receive Date: 20100802
  Receipt Date: 20100721
  Transmission Date: 20110219
  Serious: Yes (Life-Threatening, Disabling)
  Sender: FDA-Public Use
  Company Number: DK-ASTRAZENECA-2010SE35421

PATIENT
  Sex: Male
  Weight: 92 kg

DRUGS (2)
  1. SPIROCORD [Suspect]
     Dosage: 200 MICROGRAM(S)/DOSE
     Route: 055
     Dates: start: 19910101
  2. BETASERC [Interacting]
     Dosage: 16 MILLIGRAM(S)
     Route: 048
     Dates: start: 19930101, end: 19940101

REACTIONS (4)
  - DISCOMFORT [None]
  - DIZZINESS [None]
  - DRUG INTERACTION [None]
  - VISUAL IMPAIRMENT [None]
